FAERS Safety Report 16545814 (Version 2)
Quarter: 2019Q3

REPORT INFORMATION
  Report Type: Spontaneous
  Country: JP (occurrence: JP)
  Receive Date: 20190709
  Receipt Date: 20190819
  Transmission Date: 20191004
  Serious: Yes (Death, Hospitalization)
  Sender: FDA-Public Use
  Company Number: JP-PFIZER INC-2019182104

PATIENT
  Age: 72 Year
  Sex: Male

DRUGS (3)
  1. VIZIMPRO [Suspect]
     Active Substance: DACOMITINIB
     Dosage: 45 MG, 1X/DAY
     Dates: start: 20190330, end: 20190425
  2. GIOTRIF [AFATINIB DIMALEATE] [Suspect]
     Active Substance: AFATINIB DIMALEATE
     Dosage: 20 MG, 1X/DAY
     Dates: start: 20190307, end: 20190331
  3. IRESSA [Suspect]
     Active Substance: GEFITINIB
     Dosage: 250 MG, 1X/DAY
     Dates: start: 20181119, end: 20190306

REACTIONS (4)
  - Neoplasm progression [Fatal]
  - Dermatitis acneiform [Recovering/Resolving]
  - Decreased appetite [Fatal]
  - Rash [Recovering/Resolving]

NARRATIVE: CASE EVENT DATE: 20190416
